FAERS Safety Report 8921576 (Version 1)
Quarter: 2012Q4

REPORT INFORMATION
  Report Type: Report from Study
  Country: CA (occurrence: CA)
  Receive Date: 20121121
  Receipt Date: 20121121
  Transmission Date: 20130627
  Serious: Yes (Hospitalization)
  Sender: FDA-Public Use
  Company Number: CA-JNJFOC-20121010313

PATIENT
  Age: 35 Year
  Sex: Female
  Weight: 52.5 kg

DRUGS (2)
  1. REMICADE [Suspect]
     Indication: CROHN^S DISEASE
     Route: 042
     Dates: start: 20080108, end: 20120813
  2. CORTISONE [Concomitant]
     Route: 048

REACTIONS (1)
  - Intestinal operation [Recovered/Resolved]
